FAERS Safety Report 4701168-X (Version None)
Quarter: 2005Q2

REPORT INFORMATION
  Report Type: 
  Country: None (occurrence: None)
  Receive Date: 20050628
  Receipt Date: 20050623
  Transmission Date: 20051028
  Serious: Yes (Hospitalization)
  Sender: FDA-Public Use
  Company Number: CH-GLAXOSMITHKLINE-B0386099A

PATIENT
  Sex: Male

DRUGS (10)
  1. AUGMENTIN [Suspect]
     Indication: ERYSIPELAS
     Dosage: 625MG PER DAY
     Route: 048
     Dates: start: 20050517, end: 20050523
  2. ATENOLOL [Concomitant]
     Dosage: 100MG PER DAY
     Route: 048
  3. PANTOPRAZOLE SODIUM [Concomitant]
     Dosage: 40MG PER DAY
     Route: 048
  4. ENALAPRIL MALEATE [Concomitant]
     Dosage: 5MG TWICE PER DAY
     Route: 048
  5. PARACETAMOL + CODEINE PHOSPHATE [Concomitant]
     Dosage: 1TAB FOUR TIMES PER DAY
     Route: 048
  6. ACENOCOUMAROL [Concomitant]
     Route: 048
     Dates: start: 20050501
  7. LACTULOSE [Concomitant]
     Route: 048
  8. HEPARIN [Concomitant]
     Route: 058
     Dates: start: 20050519, end: 20050501
  9. DOXORUBICIN [Concomitant]
  10. VINCRISTINE SULFATE [Concomitant]

REACTIONS (5)
  - ANGIONEUROTIC OEDEMA [None]
  - DEEP VEIN THROMBOSIS [None]
  - FACE OEDEMA [None]
  - HYPERSENSITIVITY [None]
  - PURPURA [None]
